FAERS Safety Report 13252795 (Version 1)
Quarter: 2017Q1

REPORT INFORMATION
  Report Type: Spontaneous
  Country: US (occurrence: US)
  Receive Date: 20170220
  Receipt Date: 20170220
  Transmission Date: 20170428
  Serious: No
  Sender: FDA-Public Use
  Company Number: US-ACADIA PHARMACEUTICALS INC.-ACA-2016-001274

PATIENT

DRUGS (2)
  1. NUPLAZID [Suspect]
     Active Substance: PIMAVANSERIN TARTRATE
     Dosage: 34 MG, UNK
     Dates: start: 20160923
  2. NUPLAZID [Suspect]
     Active Substance: PIMAVANSERIN TARTRATE
     Indication: PARKINSON^S DISEASE PSYCHOSIS
     Dosage: 17 MG, UNK
     Route: 065
     Dates: start: 2016, end: 2016

REACTIONS (3)
  - Drug intolerance [Unknown]
  - Lethargy [Unknown]
  - Nervousness [Unknown]

NARRATIVE: CASE EVENT DATE: 2016
